FAERS Safety Report 20615103 (Version 2)
Quarter: 2022Q3

REPORT INFORMATION
  Report Type: Report from Study
  Country: US (occurrence: None)
  Receive Date: 20220321
  Receipt Date: 20220923
  Transmission Date: 20221026
  Serious: Yes (Other)
  Sender: FDA-Public Use
  Company Number: US-Merck Healthcare KGaA-9265074

PATIENT
  Age: 57 Year
  Sex: Male

DRUGS (1)
  1. REBIF [Suspect]
     Active Substance: INTERFERON BETA-1A
     Indication: Multiple sclerosis
     Route: 058
     Dates: start: 20160222

REACTIONS (11)
  - Oesophageal stenosis [Recovering/Resolving]
  - Abnormal loss of weight [Unknown]
  - Hemiparesis [Unknown]
  - Vomiting [Unknown]
  - Decreased appetite [Unknown]
  - Glycosylated haemoglobin increased [Unknown]
  - Diarrhoea [Unknown]
  - Fall [Unknown]
  - Balance disorder [Recovering/Resolving]
  - Large intestine polyp [Unknown]
  - Muscular weakness [Unknown]

NARRATIVE: CASE EVENT DATE: 20160101
